FAERS Safety Report 8393070-X (Version None)
Quarter: 2012Q2

REPORT INFORMATION
  Report Type: 
  Country: None (occurrence: None)
  Receive Date: 20120529
  Receipt Date: 20120403
  Transmission Date: 20120825
  Serious: No
  Sender: FDA-Public Use
  Company Number: US-ABBOTT-12P-163-0920371-00

PATIENT
  Sex: Male
  Weight: 83.99 kg

DRUGS (5)
  1. LISINOPRIL [Concomitant]
     Indication: HYPERTENSION
  2. SIMVASTATIN [Concomitant]
     Indication: BLOOD CHOLESTEROL INCREASED
  3. ASPIRIN [Concomitant]
     Indication: PRODUCT USED FOR UNKNOWN INDICATION
     Route: 048
  4. ANDROGEL [Suspect]
     Indication: BLOOD TESTOSTERONE DECREASED
     Dosage: 4 PUMPS DAILY
     Route: 048
  5. CARVEDILOL [Concomitant]
     Indication: HYPERTENSION

REACTIONS (3)
  - LIQUID PRODUCT PHYSICAL ISSUE [None]
  - DRUG EFFECT DECREASED [None]
  - DRUG INEFFECTIVE [None]
